FAERS Safety Report 5974407-5 (Version None)
Quarter: 2008Q4

REPORT INFORMATION
  Report Type: 
  Country: None (occurrence: None)
  Receive Date: 20081128
  Receipt Date: 20081117
  Transmission Date: 20090506
  Serious: Yes (Hospitalization)
  Sender: FDA-Public Use
  Company Number: 002-#1#2008-00727

PATIENT
  Age: 75 Year
  Sex: Male

DRUGS (5)
  1. NEUPRO [Suspect]
     Indication: DRUG USE FOR UNKNOWN INDICATION
     Dosage: 4MG/24H, 1 IN 1 D, TRANSDERMAL
     Route: 062
     Dates: start: 20080129, end: 20080401
  2. MIRAPEX [Suspect]
     Indication: PARKINSON'S DISEASE
     Dosage: .5, ORAL
     Route: 048
  3. SINEMET [Concomitant]
  4. CLOZARIL [Concomitant]
  5. COMTAN [Concomitant]

REACTIONS (2)
  - INTESTINAL OBSTRUCTION [None]
  - PRODUCT QUALITY ISSUE [None]
